FAERS Safety Report 6899216-4 (Version None)
Quarter: 2010Q3

REPORT INFORMATION
  Report Type: 
  Country: None (occurrence: None)
  Receive Date: 20100802
  Receipt Date: 20080130
  Transmission Date: 20110219
  Serious: No
  Sender: FDA-Public Use
  Company Number: US-PFIZER INC-2007070340

PATIENT
  Sex: Female
  Weight: 118.2 kg

DRUGS (6)
  1. LYRICA [Suspect]
     Indication: NEUROPATHY PERIPHERAL
     Dates: start: 20070802
  2. EFFEXOR [Suspect]
     Dates: end: 20070827
  3. TOPROL-XL [Concomitant]
     Dates: start: 20070301
  4. ANTIHYPERTENSIVES [Concomitant]
  5. LIPITOR [Concomitant]
     Dates: start: 20020101
  6. DYAZIDE [Concomitant]
     Dates: start: 20070301

REACTIONS (2)
  - STICKY SKIN [None]
  - TREMOR [None]
